FAERS Safety Report 7905715-6 (Version None)
Quarter: 2011Q4

REPORT INFORMATION
  Report Type: 
  Country: None (occurrence: None)
  Receive Date: 20111108
  Receipt Date: 20111025
  Transmission Date: 20120403
  Serious: Yes (Death)
  Sender: FDA-Public Use
  Company Number: 2011-4253

PATIENT
  Age: 74 Year
  Sex: Male

DRUGS (4)
  1. SOMATULINE DEPOT [Suspect]
     Indication: PRODUCT USED FOR UNKNOWN INDICATION
     Dosage: 60 MG (60 MG, 1 IN 4 WK)), INTRAMUSCULAR
     Route: 030
     Dates: start: 20110920
  2. ESOMEZOL [Concomitant]
  3. DICLOFENAC SODIUM [Concomitant]
  4. OXYCONTIN [Concomitant]

REACTIONS (1)
  - DEATH [None]
